FAERS Safety Report 7569672-7 (Version None)
Quarter: 2011Q2

REPORT INFORMATION
  Report Type: 
  Country: None (occurrence: None)
  Receive Date: 20110621
  Receipt Date: 20110621
  Transmission Date: 20111010
  Serious: Yes (Disabling)
  Sender: FDA-Public Use
  Company Number: None

PATIENT
  Sex: Female
  Weight: 73.4827 kg

DRUGS (1)
  1. AZASITE [Suspect]
     Indication: CATARACT
     Dosage: 3 OR 4X DAILY NOV 2010 TO JAN 2011
     Dates: start: 20101101, end: 20110101

REACTIONS (3)
  - VISUAL IMPAIRMENT [None]
  - DISCOMFORT [None]
  - EYE DISORDER [None]
